FAERS Safety Report 9136720 (Version 1)
Quarter: 2013Q1

REPORT INFORMATION
  Report Type: Spontaneous
  Country: US (occurrence: US)
  Receive Date: 20130304
  Receipt Date: 20130304
  Transmission Date: 20140127
  Serious: No
  Sender: FDA-Public Use
  Company Number: US-ABBOTT-12P-163-0962032-00

PATIENT
  Age: 67 Year
  Sex: Male
  Weight: 86.26 kg

DRUGS (1)
  1. ANDROGEL 1% [Suspect]
     Indication: BLOOD TESTOSTERONE DECREASED
     Dosage: 4 PUMPS DAILY
     Dates: start: 20120714, end: 20120730

REACTIONS (1)
  - Pruritus [Not Recovered/Not Resolved]
